FAERS Safety Report 15618493 (Version 2)
Quarter: 2018Q4

REPORT INFORMATION
  Report Type: Spontaneous
  Country: US (occurrence: US)
  Receive Date: 20181114
  Receipt Date: 20181121
  Transmission Date: 20190205
  Serious: No
  Sender: FDA-Public Use
  Company Number: US-PFIZER INC-2017381348

PATIENT
  Age: 50 Year
  Sex: Female

DRUGS (2)
  1. GENOTROPIN MQ [Suspect]
     Active Substance: SOMATROPIN
     Indication: EMPTY SELLA SYNDROME
     Dosage: 0.4 MG, DAILY
  2. GENOTROPIN MQ [Suspect]
     Active Substance: SOMATROPIN
     Dosage: 0.2 MG, DAILY
     Dates: start: 20170811

REACTIONS (19)
  - High density lipoprotein decreased [Unknown]
  - Vitamin B12 increased [Unknown]
  - Basophil count increased [Unknown]
  - Blood glucose increased [Unknown]
  - Tri-iodothyronine free increased [Unknown]
  - Carbon dioxide increased [Unknown]
  - Arthralgia [Unknown]
  - Blood chloride decreased [Unknown]
  - Total cholesterol/HDL ratio increased [Unknown]
  - Ear pain [Unknown]
  - Skin disorder [Unknown]
  - Mean cell haemoglobin increased [Unknown]
  - Product use in unapproved indication [Unknown]
  - Mental status changes [Unknown]
  - Depression [Unknown]
  - Asthenia [Unknown]
  - Dyspepsia [Unknown]
  - Anxiety [Unknown]
  - Blood thyroid stimulating hormone decreased [Unknown]

NARRATIVE: CASE EVENT DATE: 20181023
